FAERS Safety Report 8459428-5 (Version None)
Quarter: 2012Q2

REPORT INFORMATION
  Report Type: 
  Country: None (occurrence: None)
  Receive Date: 20120622
  Receipt Date: 20120620
  Transmission Date: 20120825
  Serious: Yes (Other)
  Sender: FDA-Public Use
  Company Number: US-PFIZER INC-2012117396

PATIENT
  Sex: Female
  Weight: 61.224 kg

DRUGS (4)
  1. ARIMIDEX [Suspect]
     Dosage: 1 DF, 1X/DAY
     Route: 048
     Dates: start: 20100101
  2. NORVASC [Suspect]
     Indication: BLOOD PRESSURE ABNORMAL
     Dosage: 10 MG, DAILY
     Dates: start: 20100101
  3. ARIMIDEX [Suspect]
     Dosage: UNK
     Route: 048
  4. CALCIUM [Concomitant]
     Dosage: UNK

REACTIONS (5)
  - NEOPLASM MALIGNANT [None]
  - OROPHARYNGEAL PAIN [None]
  - NASOPHARYNGITIS [None]
  - GASTROOESOPHAGEAL REFLUX DISEASE [None]
  - DYSPNOEA [None]
